FAERS Safety Report 18432824 (Version 1)
Quarter: 2020Q4

REPORT INFORMATION
  Report Type: Spontaneous
  Country: US (occurrence: US)
  Receive Date: 20201027
  Receipt Date: 20201027
  Transmission Date: 20210114
  Serious: Yes (Other)
  Sender: FDA-Public Use
  Company Number: US-BRISTOL-MYERS SQUIBB COMPANY-BMS-2020-086135

PATIENT
  Age: 58 Year
  Sex: Female
  Weight: 78.5 kg

DRUGS (16)
  1. XARELTO [Suspect]
     Active Substance: RIVAROXABAN
     Indication: PRODUCT USED FOR UNKNOWN INDICATION
     Dosage: UNK
     Route: 065
  2. TREPROSTINIL. [Suspect]
     Active Substance: TREPROSTINIL
     Dosage: 14.5 MILLIGRAM
     Route: 048
  3. OPSUMIT [Concomitant]
     Active Substance: MACITENTAN
     Indication: PRODUCT USED FOR UNKNOWN INDICATION
     Dosage: UNK
     Route: 065
  4. WARFARIN SODIUM. [Suspect]
     Active Substance: WARFARIN SODIUM
     Indication: PRODUCT USED FOR UNKNOWN INDICATION
     Dosage: UNK
     Route: 065
  5. ORENITRAM [Suspect]
     Active Substance: TREPROSTINIL
     Dosage: UNK
     Route: 048
  6. TREPROSTINIL. [Suspect]
     Active Substance: TREPROSTINIL
     Dosage: 12 MILLIGRAM, Q8H
     Route: 048
  7. ADCIRCA [Concomitant]
     Active Substance: TADALAFIL
     Indication: PRODUCT USED FOR UNKNOWN INDICATION
     Dosage: UNK
     Route: 065
  8. TREPROSTINIL. [Suspect]
     Active Substance: TREPROSTINIL
     Dosage: 12.5 MILLIGRAM, Q8H
     Route: 048
  9. TREPROSTINIL. [Suspect]
     Active Substance: TREPROSTINIL
     Indication: PULMONARY ARTERIAL HYPERTENSION
     Dosage: UNK
     Route: 048
     Dates: start: 20180601
  10. ORENITRAM [Suspect]
     Active Substance: TREPROSTINIL
     Dosage: 5 MILLIGRAM
     Route: 048
  11. ORENITRAM [Suspect]
     Active Substance: TREPROSTINIL
     Dosage: UNK
     Route: 048
  12. TREPROSTINIL. [Suspect]
     Active Substance: TREPROSTINIL
     Dosage: 14.25 MILLIGRAM, TID
     Route: 048
  13. ORENITRAM [Suspect]
     Active Substance: TREPROSTINIL
     Indication: PULMONARY ARTERIAL HYPERTENSION
     Dosage: 1 MILLIGRAM
     Route: 048
  14. ORENITRAM [Suspect]
     Active Substance: TREPROSTINIL
     Dosage: UNK
     Route: 048
  15. TREPROSTINIL. [Suspect]
     Active Substance: TREPROSTINIL
     Dosage: 13.5 MILLIGRAM, Q8H
     Route: 048
  16. TREPROSTINIL. [Suspect]
     Active Substance: TREPROSTINIL
     Dosage: 14 MILLIGRAM, Q8H
     Route: 048

REACTIONS (16)
  - Breath odour [Not Recovered/Not Resolved]
  - Pain [Not Recovered/Not Resolved]
  - Joint swelling [Unknown]
  - Pain in extremity [Recovering/Resolving]
  - Flatulence [Not Recovered/Not Resolved]
  - Contusion [Unknown]
  - Dyspnoea [Unknown]
  - Feeling abnormal [Unknown]
  - Fall [Recovered/Resolved with Sequelae]
  - Fluid retention [Unknown]
  - Haematoma [Unknown]
  - Weight increased [Unknown]
  - Back pain [Unknown]
  - Pain in jaw [Not Recovered/Not Resolved]
  - Nausea [Not Recovered/Not Resolved]
  - Wrong dose [Unknown]

NARRATIVE: CASE EVENT DATE: 202007
